FAERS Safety Report 8290307 (Version 3)
Quarter: 2013Q2

REPORT INFORMATION
  Report Type: Spontaneous
  Country: US (occurrence: None)
  Receive Date: 20111122
  Receipt Date: 20120703
  Transmission Date: 20140414
  Serious: No
  Sender: FDA-Public Use
  Company Number: PHEH2011US02713

PATIENT
  Age: 39 Year
  Sex: Female
  Weight: 129.7 kg

DRUGS (8)
  1. GILENYA [Suspect]
     Indication: MULTIPLE SCLEROSIS
     Dosage: 0.5 MG, QD, ORAL
     Route: 048
     Dates: start: 20110824
  2. SINGULAIR [Concomitant]
  3. NAPROXEN (NAPROXEN) [Concomitant]
  4. AMOXICILLIN [Concomitant]
  5. HYDROCHLOROTHIAZIDE [Concomitant]
  6. CRYSELLE [Concomitant]
  7. PRENATAL (ASCORBIC ACID, CALCIUM GLUCONATE, CUPRIC CARBONATE BASIC CYANOCOBALAMIN, ERGOCALCIFEROL, F [Concomitant]
  8. ANTIALLERGIC AGENTS, EXCL CORTICOSTEROIDS (NO INGREDIENTS/SUBSTANCES) [Concomitant]

REACTIONS (4)
  - DYSPEPSIA [None]
  - Full blood count decreased [None]
  - Anaemia [None]
  - Alopecia [None]
